FAERS Safety Report 8798439 (Version 1)
Quarter: 2012Q4

REPORT INFORMATION
  Report Type: 
  Country: US (occurrence: None)
  Receive Date: 20120917
  Receipt Date: 20120917
  Transmission Date: 20130627
  Serious: Yes (Hospitalization)
  Sender: FDA-Public Use
  Company Number: None

PATIENT
  Sex: Female
  Weight: 16.9 kg

DRUGS (10)
  1. CYCLOPHOSPHAMIDE [Suspect]
     Dates: end: 20120802
  2. DACTINOMYCIN [Suspect]
     Dates: end: 20120802
  3. VINCRISTINE SULFATE [Suspect]
     Dates: end: 20120802
  4. BENADRYL [Concomitant]
  5. HYDROCORTISONE [Concomitant]
  6. VANCOMYCIN [Concomitant]
  7. DOPOMINE [Concomitant]
  8. MEROPENEM [Concomitant]
  9. RANITIDINE [Concomitant]
  10. VANCOMYCIN [Concomitant]

REACTIONS (12)
  - Blood pressure immeasurable [None]
  - Culture urine positive [None]
  - Escherichia test positive [None]
  - Pyrexia [None]
  - Chills [None]
  - Headache [None]
  - Asthenia [None]
  - Vomiting [None]
  - Hypophagia [None]
  - Heart rate increased [None]
  - Respiratory rate increased [None]
  - Leukocyturia [None]
